FAERS Safety Report 5142945-3 (Version None)
Quarter: 2006Q4

REPORT INFORMATION
  Report Type: 
  Country: None (occurrence: None)
  Receive Date: 20061030
  Receipt Date: 20061022
  Transmission Date: 20070319
  Serious: Yes (Life-Threatening)
  Sender: FDA-Public Use
  Company Number: 2006-149565-NL

PATIENT
  Age: 56 Year
  Sex: Female

DRUGS (5)
  1. MIRTAZAPINE [Suspect]
     Indication: MAJOR DEPRESSION
     Dosage: 15 MG/30 MG
     Dates: start: 20040101
  2. MIRTAZAPINE [Suspect]
     Indication: MAJOR DEPRESSION
     Dosage: 15 MG/30 MG
     Dates: start: 20040801
  3. ACETYLSALICYLIC ACID SRT [Concomitant]
  4. NITRATE [Concomitant]
  5. ACARBOSE [Concomitant]

REACTIONS (3)
  - CORONARY ARTERY STENOSIS [None]
  - MYOCARDIAL INFARCTION [None]
  - NECK PAIN [None]
